FAERS Safety Report 4545764-1 (Version None)
Quarter: 2005Q1

REPORT INFORMATION
  Report Type: 
  Country: None (occurrence: None)
  Receive Date: 20050104
  Receipt Date: 20050104
  Transmission Date: 20050727
  Serious: No
  Sender: FDA-Public Use
  Company Number: None

PATIENT
  Age: 52 Year
  Sex: Female

DRUGS (2)
  1. GLUCOTROL [Suspect]
     Dosage: TAB
  2. GLYBURIDE [Suspect]
     Dosage: TAB

REACTIONS (1)
  - MEDICATION ERROR [None]
